FAERS Safety Report 18981223 (Version 1)
Quarter: 2021Q1

REPORT INFORMATION
  Report Type: Spontaneous
  Country: US (occurrence: US)
  Receive Date: 20210305
  Receipt Date: 20210305
  Transmission Date: 20210420
  Serious: Yes (Disabling, Other)
  Sender: FDA-Public Use
  Company Number: None

PATIENT
  Age: 50 Year
  Sex: Female
  Weight: 52.62 kg

DRUGS (3)
  1. CUTIVATE [Suspect]
     Active Substance: FLUTICASONE PROPIONATE
  2. HYDROCORTISONE 1% [Suspect]
     Active Substance: HYDROCORTISONE
  3. TOPICAL STEROIDS [Concomitant]
     Active Substance: UNSPECIFIED INGREDIENT
     Dates: start: 20191201, end: 20201201

REACTIONS (8)
  - Collagen disorder [None]
  - Bedridden [None]
  - Skin exfoliation [None]
  - Rash [None]
  - Impaired work ability [None]
  - Skin burning sensation [None]
  - Swelling [None]
  - Temperature regulation disorder [None]

NARRATIVE: CASE EVENT DATE: 20201220
